FAERS Safety Report 12259325 (Version 1)
Quarter: 2016Q2

REPORT INFORMATION
  Report Type: Spontaneous
  Country: US (occurrence: US)
  Receive Date: 20160412
  Receipt Date: 20160412
  Transmission Date: 20160815
  Serious: No
  Sender: FDA-Public Use
  Company Number: US-SA-2015SA078013

PATIENT
  Age: 59 Year
  Sex: Female

DRUGS (1)
  1. ALLEGRA [Suspect]
     Active Substance: FEXOFENADINE HYDROCHLORIDE
     Indication: SEASONAL ALLERGY
     Dosage: PRODUCT START DATE- LITTLE OVER A WEEK?FORM-ALLEGRA ALLERGY 24 HOUR GELCAP OTC
     Route: 065

REACTIONS (1)
  - Rash pruritic [Unknown]
